FAERS Safety Report 6158082-5 (Version None)
Quarter: 2009Q2

REPORT INFORMATION
  Report Type: 
  Country: None (occurrence: None)
  Receive Date: 20090417
  Receipt Date: 20090410
  Transmission Date: 20091009
  Serious: Yes (Other)
  Sender: FDA-Public Use
  Company Number: PHEH2009US02581

PATIENT
  Sex: Female

DRUGS (1)
  1. RECLAST [Suspect]
     Dosage: UNK
     Dates: start: 20081231

REACTIONS (9)
  - ARTERIAL OCCLUSIVE DISEASE [None]
  - ARTERIAL THERAPEUTIC PROCEDURE [None]
  - ARTHROPATHY [None]
  - BACK PAIN [None]
  - CONDITION AGGRAVATED [None]
  - HYPERTENSION [None]
  - INTERVERTEBRAL DISC PROTRUSION [None]
  - MYALGIA [None]
  - TOOTH LOSS [None]
